FAERS Safety Report 4392918-3 (Version None)
Quarter: 2004Q3

REPORT INFORMATION
  Report Type: 
  Country: None (occurrence: None)
  Receive Date: 20040702
  Receipt Date: 20040415
  Transmission Date: 20050211
  Serious: Yes (Other)
  Sender: FDA-Public Use
  Company Number: 2004UW07600

PATIENT
  Age: 76 Year
  Sex: Female
  Weight: 71.6683 kg

DRUGS (12)
  1. CRESTOR [Suspect]
     Indication: BLOOD CHOLESTEROL INCREASED
     Dosage: 10 MG PO
     Route: 048
     Dates: start: 20031212, end: 20031227
  2. VASOTEC [Concomitant]
  3. LEVOTHYROID [Concomitant]
  4. H-CHLORTHIAZID [Concomitant]
  5. IMDUR [Concomitant]
  6. ASPIRIN [Concomitant]
  7. CALCIUM [Concomitant]
  8. VITAMIN D [Concomitant]
  9. VITAMIN E [Concomitant]
  10. MALIC ACID [Concomitant]
  11. KADIAN [Concomitant]
  12. TYLENOL W/ CODEINE [Concomitant]

REACTIONS (2)
  - GOUT [None]
  - PAIN IN EXTREMITY [None]
